FAERS Safety Report 10883040 (Version 17)
Quarter: 2015Q4

REPORT INFORMATION
  Report Type: Report from Study
  Country: US (occurrence: US)
  Receive Date: 20150303
  Receipt Date: 20151124
  Transmission Date: 20160304
  Serious: Yes (Hospitalization, Other)
  Sender: FDA-Public Use
  Company Number: US-SA-2015SA018973

PATIENT
  Age: 54 Year
  Sex: Female

DRUGS (7)
  1. AUBAGIO [Suspect]
     Active Substance: TERIFLUNOMIDE
     Indication: MULTIPLE SCLEROSIS
     Route: 048
     Dates: start: 20150819
  2. PLEGRIDY [Concomitant]
     Active Substance: PEGINTERFERON BETA-1A
     Dates: start: 20150622, end: 20150722
  3. PROVIGIL [Concomitant]
     Active Substance: MODAFINIL
  4. BENTYL [Concomitant]
     Active Substance: DICYCLOMINE HYDROCHLORIDE
  5. XYREM [Concomitant]
     Active Substance: SODIUM OXYBATE
     Indication: NARCOLEPSY
  6. CLONIDINE. [Concomitant]
     Active Substance: CLONIDINE
  7. AUBAGIO [Suspect]
     Active Substance: TERIFLUNOMIDE
     Indication: MULTIPLE SCLEROSIS
     Route: 048
     Dates: start: 20150206, end: 20150606

REACTIONS (71)
  - Dyspnoea [Recovering/Resolving]
  - Multiple sclerosis [Unknown]
  - Sensory disturbance [Unknown]
  - Bladder disorder [Not Recovered/Not Resolved]
  - Musculoskeletal discomfort [Unknown]
  - Acne [Not Recovered/Not Resolved]
  - Facial pain [Not Recovered/Not Resolved]
  - Rash [Not Recovered/Not Resolved]
  - Vision blurred [Unknown]
  - Nuclear magnetic resonance imaging abnormal [Unknown]
  - Tremor [Unknown]
  - Multiple sclerosis relapse [Unknown]
  - Paraesthesia [Unknown]
  - Asthenia [Unknown]
  - Activities of daily living impaired [Unknown]
  - Drug dose omission [Unknown]
  - Limb discomfort [Not Recovered/Not Resolved]
  - Vomiting [Unknown]
  - Memory impairment [Unknown]
  - Condition aggravated [Unknown]
  - Condition aggravated [Not Recovered/Not Resolved]
  - Hypokinesia [Not Recovered/Not Resolved]
  - Skin infection [Not Recovered/Not Resolved]
  - Erythema [Not Recovered/Not Resolved]
  - Localised infection [Not Recovered/Not Resolved]
  - Neuromyopathy [Unknown]
  - Fatigue [Unknown]
  - Insomnia [Unknown]
  - Lethargy [Unknown]
  - Skin exfoliation [Unknown]
  - Back pain [Not Recovered/Not Resolved]
  - Pain in extremity [Not Recovered/Not Resolved]
  - Secretion discharge [Not Recovered/Not Resolved]
  - Listless [Unknown]
  - Dermatitis [Unknown]
  - Arthralgia [Unknown]
  - Headache [Unknown]
  - Chest pain [Recovered/Resolved]
  - Disturbance in attention [Unknown]
  - Fatigue [Not Recovered/Not Resolved]
  - Disturbance in attention [Unknown]
  - Scab [Not Recovered/Not Resolved]
  - Pyrexia [Unknown]
  - Balance disorder [Unknown]
  - Rash erythematous [Not Recovered/Not Resolved]
  - Multiple sclerosis relapse [Unknown]
  - Pain [Unknown]
  - Skin disorder [Not Recovered/Not Resolved]
  - Hypertension [Recovering/Resolving]
  - Nervousness [Unknown]
  - Nausea [Unknown]
  - Diarrhoea [Unknown]
  - Deformity [Not Recovered/Not Resolved]
  - Hyperhidrosis [Unknown]
  - Skin warm [Not Recovered/Not Resolved]
  - Malaise [Unknown]
  - Muscular weakness [Unknown]
  - Pain in extremity [Unknown]
  - Hypoaesthesia [Unknown]
  - Pain [Not Recovered/Not Resolved]
  - Fatigue [Not Recovered/Not Resolved]
  - Weight bearing difficulty [Not Recovered/Not Resolved]
  - Hyperhidrosis [Not Recovered/Not Resolved]
  - Influenza like illness [Unknown]
  - Unevaluable event [Unknown]
  - Fall [Unknown]
  - Muscle twitching [Unknown]
  - Swelling face [Not Recovered/Not Resolved]
  - Dysstasia [Unknown]
  - Rosacea [Unknown]
  - Myalgia [Unknown]

NARRATIVE: CASE EVENT DATE: 2015
